FAERS Safety Report 24646413 (Version 1)
Quarter: 2024Q4

REPORT INFORMATION
  Report Type: Spontaneous
  Country: CN (occurrence: CN)
  Receive Date: 20241121
  Receipt Date: 20241121
  Transmission Date: 20250114
  Serious: Yes (Other)
  Sender: ROCHE
  Company Number: CN-ROCHE-10000131235

PATIENT
  Age: 70 Year
  Sex: Female

DRUGS (8)
  1. TRASTUZUMAB [Suspect]
     Active Substance: TRASTUZUMAB
     Indication: Invasive breast carcinoma
     Route: 065
  2. TRASTUZUMAB [Suspect]
     Active Substance: TRASTUZUMAB
     Indication: Metastases to lymph nodes
  3. PERTUZUMAB [Suspect]
     Active Substance: PERTUZUMAB
     Indication: Invasive breast carcinoma
     Route: 065
  4. PERTUZUMAB [Suspect]
     Active Substance: PERTUZUMAB
     Indication: Metastases to lymph nodes
  5. LETROZOLE [Concomitant]
     Active Substance: LETROZOLE
  6. PYROTINIB [Concomitant]
     Active Substance: PYROTINIB
     Route: 048
  7. CAPECITABINE [Concomitant]
     Active Substance: CAPECITABINE
     Route: 048
  8. VINORELBINE [Concomitant]
     Active Substance: VINORELBINE TARTRATE

REACTIONS (3)
  - Cough [Unknown]
  - Metastases to lung [Recovered/Resolved]
  - Disease progression [Unknown]

NARRATIVE: CASE EVENT DATE: 20211101
